FAERS Safety Report 8417200-6 (Version None)
Quarter: 2012Q2

REPORT INFORMATION
  Report Type: 
  Country: None (occurrence: None)
  Receive Date: 20120606
  Receipt Date: 20120531
  Transmission Date: 20120825
  Serious: Yes (Hospitalization, Other)
  Sender: FDA-Public Use
  Company Number: FR-FRI-1000030663

PATIENT
  Age: 44 Year
  Sex: Male

DRUGS (8)
  1. METHADONE HCL [Concomitant]
     Dosage: 250 MG
  2. PAROXETINE [Concomitant]
     Dosage: 20 MG
  3. METHADONE HCL [Concomitant]
     Dosage: 160 MG
  4. ALPRAZOLAM [Concomitant]
     Dosage: 6 TABLETS DAILY
  5. NEBIVOLOL [Suspect]
     Dosage: 5 MG
  6. NEBIVOLOL [Suspect]
     Dosage: 7.5 MG
  7. METHADONE HCL [Concomitant]
     Dosage: 200 MG
  8. NEBIVOLOL [Suspect]
     Dosage: 2.5 MG  QAM + 1.25 MG QPM

REACTIONS (3)
  - BRADYCARDIA [None]
  - VENTRICULAR TACHYCARDIA [None]
  - DRUG INTOLERANCE [None]
